FAERS Safety Report 14364563 (Version 1)
Quarter: 2018Q1

REPORT INFORMATION
  Report Type: Other
  Country: US (occurrence: US)
  Receive Date: 20180108
  Receipt Date: 20180108
  Transmission Date: 20180509
  Serious: Yes (Death)
  Sender: FDA-Public Use
  Company Number: US-OSMOTICA_PHARMACEUTICAL_US_LLC-POI0573201800009

PATIENT
  Age: 51 Year
  Sex: Female

DRUGS (8)
  1. LAMOTRIGINE. [Suspect]
     Active Substance: LAMOTRIGINE
     Dates: end: 2016
  2. HYDROXYZINE [Suspect]
     Active Substance: HYDROXYZINE HYDROCHLORIDE
     Dates: end: 2016
  3. DONEPEZIL HYDROCHLORIDE TABLETS [Suspect]
     Active Substance: DONEPEZIL HYDROCHLORIDE
     Dates: end: 2016
  4. OLANZAPINE. [Suspect]
     Active Substance: OLANZAPINE
     Dates: end: 2016
  5. BENZTROPINE. [Suspect]
     Active Substance: BENZTROPINE
     Dates: end: 2016
  6. VALPROIC ACID. [Suspect]
     Active Substance: VALPROIC ACID
     Dates: end: 2016
  7. HALOPERIDOL. [Suspect]
     Active Substance: HALOPERIDOL
     Dates: end: 2016
  8. DULOXETINE. [Suspect]
     Active Substance: DULOXETINE
     Dates: end: 2016

REACTIONS (1)
  - Completed suicide [Fatal]

NARRATIVE: CASE EVENT DATE: 2016
